FAERS Safety Report 6476099-8 (Version None)
Quarter: 2009Q4

REPORT INFORMATION
  Report Type: 
  Country: None (occurrence: None)
  Receive Date: 20091204
  Receipt Date: 20090112
  Transmission Date: 20100525
  Serious: No
  Sender: FDA-Public Use
  Company Number: US-AMGEN-KDL328117

PATIENT
  Sex: Female

DRUGS (1)
  1. ENBREL [Suspect]
     Indication: RHEUMATOID ARTHRITIS
     Route: 058
     Dates: start: 20080811

REACTIONS (7)
  - ALOPECIA [None]
  - DRUG INEFFECTIVE [None]
  - FATIGUE [None]
  - GAIT DISTURBANCE [None]
  - HEADACHE [None]
  - LYME DISEASE [None]
  - SWELLING [None]
